FAERS Safety Report 6423314-2 (Version None)
Quarter: 2009Q4

REPORT INFORMATION
  Report Type: 
  Country: None (occurrence: None)
  Receive Date: 20091102
  Receipt Date: 20091023
  Transmission Date: 20100525
  Serious: Yes (Other)
  Sender: FDA-Public Use
  Company Number: TR-ELI_LILLY_AND_COMPANY-TR200910005811

PATIENT
  Age: 25 Year
  Sex: Female

DRUGS (3)
  1. HUMULIN N [Suspect]
     Indication: GESTATIONAL DIABETES
     Dosage: UNK UNK, 2/D
     Route: 058
     Dates: start: 20090901, end: 20091007
  2. HUMULIN N [Suspect]
     Dosage: 3 U, EACH EVENING
     Route: 058
     Dates: start: 20090901, end: 20091007
  3. VITAMINS NOS [Concomitant]
     Indication: VITAMIN SUPPLEMENTATION
     Dosage: 1 D/F, EACH MORNING
     Dates: start: 20090301, end: 20090925

REACTIONS (3)
  - BLOOD GLUCOSE INCREASED [None]
  - DRUG EXPOSURE DURING PREGNANCY [None]
  - HYPERTENSION [None]
